FAERS Safety Report 5874300-2 (Version None)
Quarter: 2008Q3

REPORT INFORMATION
  Report Type: 
  Country: None (occurrence: None)
  Receive Date: 20080908
  Receipt Date: 20080901
  Transmission Date: 20090109
  Serious: Yes (Other)
  Sender: FDA-Public Use
  Company Number: DE-AMGEN-US305461

PATIENT
  Sex: Male
  Weight: 75 kg

DRUGS (4)
  1. ENBREL [Suspect]
     Indication: PSORIATIC ARTHROPATHY
     Route: 058
     Dates: start: 20060603, end: 20080101
  2. ENBREL [Suspect]
     Indication: PSORIASIS
  3. BETAMETHASONE [Concomitant]
     Indication: PSORIASIS
     Dosage: UNKNOWN
     Route: 065
  4. INDOMETHACIN [Concomitant]
     Route: 065

REACTIONS (3)
  - BLOOD CHOLESTEROL INCREASED [None]
  - BLOOD TRIGLYCERIDES INCREASED [None]
  - CONDITION AGGRAVATED [None]
